FAERS Safety Report 12497967 (Version 5)
Quarter: 2016Q4

REPORT INFORMATION
  Report Type: Spontaneous
  Country: US (occurrence: US)
  Receive Date: 20160626
  Receipt Date: 20161003
  Transmission Date: 20170207
  Serious: Yes (Hospitalization, Other)
  Sender: FDA-Public Use
  Company Number: US-TEVA-671575USA

PATIENT
  Age: 34 Year
  Sex: Female
  Weight: 89.89 kg

DRUGS (5)
  1. SYNRIBO [Suspect]
     Active Substance: OMACETAXINE MEPESUCCINATE
     Dosage: 1.25 MG/M2
     Route: 065
     Dates: start: 201607
  2. LOVENOX [Concomitant]
     Active Substance: ENOXAPARIN SODIUM
  3. SYNRIBO [Suspect]
     Active Substance: OMACETAXINE MEPESUCCINATE
     Indication: CHRONIC MYELOID LEUKAEMIA
     Dosage: HOME ADMINISTRATION
     Route: 065
     Dates: start: 20160324, end: 20160622
  4. HYDROXYUREA. [Concomitant]
     Active Substance: HYDROXYUREA
  5. DILAUDID [Concomitant]
     Active Substance: HYDROMORPHONE HYDROCHLORIDE

REACTIONS (3)
  - Neutropenia [Recovered/Resolved]
  - Pyrexia [Unknown]
  - Neutrophil count decreased [Recovered/Resolved]

NARRATIVE: CASE EVENT DATE: 201607
